FAERS Safety Report 7383143-2 (Version None)
Quarter: 2011Q1

REPORT INFORMATION
  Report Type: 
  Country: None (occurrence: None)
  Receive Date: 20110325
  Receipt Date: 20110325
  Transmission Date: 20110831
  Serious: Yes (Hospitalization)
  Sender: FDA-Public Use
  Company Number: None

PATIENT
  Age: 76 Year
  Sex: Female
  Weight: 51.2565 kg

DRUGS (2)
  1. DOCETAXEL [Suspect]
     Indication: LUNG NEOPLASM MALIGNANT
     Dosage: DOCETAXEL 35MG/M2 IV
     Route: 042
     Dates: start: 20110302
  2. AVASTIN [Suspect]
     Dosage: AVASTIN 10MG/KG IV
     Route: 042
     Dates: start: 20110223

REACTIONS (3)
  - ASTHENIA [None]
  - URINARY TRACT INFECTION [None]
  - HYPOTENSION [None]
